FAERS Safety Report 7049854-3 (Version None)
Quarter: 2010Q4

REPORT INFORMATION
  Report Type: 
  Country: None (occurrence: None)
  Receive Date: 20101013
  Receipt Date: 20100930
  Transmission Date: 20110411
  Serious: Yes (Other)
  Sender: FDA-Public Use
  Company Number: 8042962

PATIENT
  Sex: Female

DRUGS (4)
  1. KEPPRA [Suspect]
     Indication: EPILEPSY
     Dosage: (1000 MG QD ORAL)
     Route: 048
     Dates: start: 20081001
  2. FOLIC ACID [Concomitant]
  3. PRENATAL VITAMINS /01549301/ [Concomitant]
  4. SYNTHROID [Concomitant]

REACTIONS (3)
  - DRUG EXPOSURE DURING PREGNANCY [None]
  - PREGNANCY [None]
  - THYROID CANCER [None]
